FAERS Safety Report 7653140-8 (Version None)
Quarter: 2011Q3

REPORT INFORMATION
  Report Type: 
  Country: None (occurrence: None)
  Receive Date: 20110802
  Receipt Date: 20110802
  Transmission Date: 20111222
  Serious: Yes (Other)
  Sender: FDA-Public Use
  Company Number: None

PATIENT
  Age: 69 Year
  Sex: Female
  Weight: 51.7101 kg

DRUGS (1)
  1. ESTROGEN-METHYLTESTOS F.S. [Suspect]
     Indication: HORMONE REPLACEMENT THERAPY
     Dosage: 1 DAILY DAILY BY MOUTH
     Route: 048
     Dates: start: 20110201, end: 20110228

REACTIONS (6)
  - VISUAL IMPAIRMENT [None]
  - CHEST PAIN [None]
  - PAIN [None]
  - NAUSEA [None]
  - DYSPNOEA [None]
  - PAIN IN EXTREMITY [None]
